FAERS Safety Report 6437282-0 (Version None)
Quarter: 2009Q4

REPORT INFORMATION
  Report Type: 
  Country: None (occurrence: None)
  Receive Date: 20091110
  Receipt Date: 20080630
  Transmission Date: 20100525
  Serious: No
  Sender: FDA-Public Use
  Company Number: AEUSA200800150

PATIENT

DRUGS (3)
  1. GAMUNEX [Suspect]
     Indication: IDIOPATHIC THROMBOCYTOPENIC PURPURA
     Dosage: 80 GM; QD; IV
     Route: 042
     Dates: start: 20080619, end: 20080620
  2. PREDNISONE [Concomitant]
  3. IMMUNOSUPPRESSIVE AGENTS [Concomitant]

REACTIONS (4)
  - COOMBS DIRECT TEST POSITIVE [None]
  - HAEMOGLOBIN DECREASED [None]
  - HAEMOLYSIS [None]
  - NUCLEATED RED CELLS [None]
